FAERS Safety Report 6232333-0 (Version None)
Quarter: 2009Q2

REPORT INFORMATION
  Report Type: 
  Country: None (occurrence: None)
  Receive Date: 20090617
  Receipt Date: 20090610
  Transmission Date: 20091009
  Serious: Yes (Other)
  Sender: FDA-Public Use
  Company Number: US-ASTRAZENECA-2009UW14868

PATIENT
  Age: 24 Year
  Sex: Female
  Weight: 47.2 kg

DRUGS (4)
  1. SEROQUEL [Suspect]
     Indication: INSOMNIA
     Route: 048
     Dates: start: 20010601, end: 20060101
  2. SEROQUEL [Suspect]
     Route: 048
  3. FIORINAL W/CODEINE [Concomitant]
     Indication: MIGRAINE
  4. DEPO-PROVERA [Concomitant]
     Indication: CONTRACEPTION

REACTIONS (6)
  - APHASIA [None]
  - CHEST DISCOMFORT [None]
  - HEART RATE INCREASED [None]
  - ILL-DEFINED DISORDER [None]
  - LOSS OF CONSCIOUSNESS [None]
  - PANIC ATTACK [None]
